FAERS Safety Report 6416274-1 (Version None)
Quarter: 2009Q4

REPORT INFORMATION
  Report Type: 
  Country: None (occurrence: None)
  Receive Date: 20091027
  Receipt Date: 20091020
  Transmission Date: 20100525
  Serious: Yes (Hospitalization)
  Sender: FDA-Public Use
  Company Number: US-ELI_LILLY_AND_COMPANY-US200910004862

PATIENT
  Age: 18 Month

DRUGS (1)
  1. HUMALOG [Suspect]

REACTIONS (1)
  - HOSPITALISATION [None]
